FAERS Safety Report 15991104 (Version 1)
Quarter: 2019Q1

REPORT INFORMATION
  Report Type: Spontaneous
  Country: US (occurrence: US)
  Receive Date: 20190125
  Receipt Date: 20190125
  Transmission Date: 20190418
  Serious: No
  Sender: FDA-Public Use
  Company Number: None

PATIENT
  Age: 71 Year
  Sex: Male
  Weight: 71 kg

DRUGS (1)
  1. LATANOPROST. [Suspect]
     Active Substance: LATANOPROST
     Indication: GLAUCOMA
     Dates: start: 20180918, end: 20181014

REACTIONS (4)
  - Eyelid irritation [None]
  - Dry eye [None]
  - Photophobia [None]
  - Ocular hyperaemia [None]

NARRATIVE: CASE EVENT DATE: 20181011
